FAERS Safety Report 23581041 (Version 2)
Quarter: 2025Q1

REPORT INFORMATION
  Report Type: Other
  Country: US (occurrence: US)
  Receive Date: 20240229
  Receipt Date: 20250115
  Transmission Date: 20250408
  Serious: No
  Sender: TRAVERE THERAPEUTICS
  Company Number: US-TRAVERE-2024TVT00172

PATIENT
  Age: 61 Year
  Sex: Female

DRUGS (1)
  1. FILSPARI [Suspect]
     Active Substance: SPARSENTAN
     Indication: IgA nephropathy
     Dosage: 200MG 2 TABLETS DAILY
     Route: 048
     Dates: start: 20240208

REACTIONS (2)
  - Protein total increased [None]
  - Joint swelling [Unknown]
